FAERS Safety Report 23881180 (Version 1)
Quarter: 2024Q2

REPORT INFORMATION
  Report Type: Report from Study
  Country: US (occurrence: US)
  Receive Date: 20240521
  Receipt Date: 20240521
  Transmission Date: 20240715
  Serious: Yes (Hospitalization)
  Sender: FDA-Public Use
  Company Number: US-TAKEDA-2022TUS060850

PATIENT
  Sex: Female

DRUGS (8)
  1. TEDUGLUTIDE [Suspect]
     Active Substance: TEDUGLUTIDE
     Indication: Gastrointestinal inflammation
     Dosage: 3.1 MILLIGRAM, QD
     Route: 058
     Dates: start: 20220120
  2. TEDUGLUTIDE [Suspect]
     Active Substance: TEDUGLUTIDE
     Indication: Gastrointestinal inflammation
     Dosage: 3.1 MILLIGRAM, QD
     Route: 058
     Dates: start: 20220120
  3. TEDUGLUTIDE [Suspect]
     Active Substance: TEDUGLUTIDE
     Indication: Gastrointestinal inflammation
     Dosage: 3.1 MILLIGRAM, QD
     Route: 058
     Dates: start: 20220120
  4. TEDUGLUTIDE [Suspect]
     Active Substance: TEDUGLUTIDE
     Indication: Gastrointestinal inflammation
     Dosage: 3.1 MILLIGRAM, QD
     Route: 058
     Dates: start: 20220120
  5. TEDUGLUTIDE [Suspect]
     Active Substance: TEDUGLUTIDE
     Indication: Colitis
     Dosage: 0.31 MILLILITER, QD
     Route: 058
     Dates: start: 202201
  6. TEDUGLUTIDE [Suspect]
     Active Substance: TEDUGLUTIDE
     Indication: Colitis
     Dosage: 0.31 MILLILITER, QD
     Route: 058
     Dates: start: 202201
  7. TEDUGLUTIDE [Suspect]
     Active Substance: TEDUGLUTIDE
     Indication: Colitis
     Dosage: 0.31 MILLILITER, QD
     Route: 058
     Dates: start: 202201
  8. TEDUGLUTIDE [Suspect]
     Active Substance: TEDUGLUTIDE
     Indication: Colitis
     Dosage: 0.31 MILLILITER, QD
     Route: 058
     Dates: start: 202201

REACTIONS (2)
  - Hospitalisation [Unknown]
  - Flatulence [Unknown]
